FAERS Safety Report 16346271 (Version 1)
Quarter: 2019Q2

REPORT INFORMATION
  Report Type: Spontaneous
  Country: US (occurrence: US)
  Receive Date: 20190523
  Receipt Date: 20190523
  Transmission Date: 20190711
  Serious: No
  Sender: FDA-Public Use
  Company Number: US-PFIZER INC-2019212592

PATIENT
  Age: 79 Year
  Sex: Female

DRUGS (7)
  1. LYRICA [Suspect]
     Active Substance: PREGABALIN
     Dosage: 150 MG, 2X/DAY
     Route: 048
  2. HYDROCODONE/PARACETAMOL [Concomitant]
     Indication: NERVE INJURY
  3. LYRICA [Suspect]
     Active Substance: PREGABALIN
     Indication: NERVE INJURY
     Dosage: 100 MG, UNK
     Dates: start: 2015
  4. HYDROCODONE/PARACETAMOL [Concomitant]
     Indication: PROPHYLAXIS
  5. PROMETHAZINE W/CODEINE [Concomitant]
     Active Substance: CODEINE\PROMETHAZINE
     Dosage: 1 TABLESPOON
     Dates: start: 2009
  6. PROMETHAZINE W/CODEINE [Concomitant]
     Active Substance: CODEINE\PROMETHAZINE
     Indication: COUGH
     Dosage: 1 TEASPOON, EVERY 4H AS NEEDED
     Dates: start: 2009
  7. HYDROCODONE/PARACETAMOL [Concomitant]
     Indication: COUGH
     Dosage: 1 DF, AS NEEDED
     Route: 048
     Dates: start: 2015

REACTIONS (4)
  - Pre-existing condition improved [Not Recovered/Not Resolved]
  - Therapeutic response unexpected [Not Recovered/Not Resolved]
  - Product use in unapproved indication [Unknown]
  - Off label use [Unknown]

NARRATIVE: CASE EVENT DATE: 2015
